FAERS Safety Report 9353357 (Version 2)
Quarter: 2013Q3

REPORT INFORMATION
  Report Type: Spontaneous
  Country: US (occurrence: US)
  Receive Date: 20130618
  Receipt Date: 20130716
  Transmission Date: 20140515
  Serious: Yes (Hospitalization, Other)
  Sender: FDA-Public Use
  Company Number: US-ASTRAZENECA-2013SE42694

PATIENT
  Age: 69 Year
  Sex: Female
  Weight: 129.3 kg

DRUGS (5)
  1. CRESTOR [Suspect]
     Route: 048
     Dates: end: 20110203
  2. DISLUCAN [Concomitant]
  3. SPIRONLACTONE [Concomitant]
  4. SULINDAC [Concomitant]
  5. TRENTAL [Concomitant]

REACTIONS (5)
  - Paralysis [Recovered/Resolved]
  - Sympathetic posterior cervical syndrome [Unknown]
  - Hyperglycaemia [Unknown]
  - Cervical spinal stenosis [Unknown]
  - Rhabdomyolysis [Recovered/Resolved]
